FAERS Safety Report 10040054 (Version 1)
Quarter: 2014Q1

REPORT INFORMATION
  Report Type: Spontaneous
  Country: US (occurrence: US)
  Receive Date: 20140326
  Receipt Date: 20140326
  Transmission Date: 20141002
  Serious: Yes (Other)
  Sender: FDA-Public Use
  Company Number: US-JNJFOC-20140312807

PATIENT
  Sex: 0

DRUGS (1)
  1. INFLIXIMAB, RECOMBINANT [Suspect]
     Indication: CROHN^S DISEASE
     Route: 042

REACTIONS (7)
  - Staphylococcal sepsis [Unknown]
  - Paraspinal abscess [Unknown]
  - Meningitis cryptococcal [Unknown]
  - Pneumonia [Unknown]
  - Intestinal operation [Unknown]
  - Infusion related reaction [Unknown]
  - Therapeutic response decreased [Unknown]
